FAERS Safety Report 8032550-3 (Version None)
Quarter: 2011Q4

REPORT INFORMATION
  Report Type: 
  Country: None (occurrence: None)
  Receive Date: 20111228
  Receipt Date: 20111214
  Transmission Date: 20120403
  Serious: Yes (Hospitalization, Other)
  Sender: FDA-Public Use
  Company Number: 2011SP053981

PATIENT
  Age: 53 Year
  Sex: Male
  Weight: 77.7 kg

DRUGS (2)
  1. NORVASC [Concomitant]
  2. TEMODAL [Suspect]
     Indication: GLIOBLASTOMA MULTIFORME
     Dosage: 140 MG; QD; PO
     Route: 048
     Dates: start: 20110725, end: 20110904

REACTIONS (5)
  - EOSINOPHIL COUNT INCREASED [None]
  - HYPERTENSION [None]
  - DRUG ERUPTION [None]
  - ECZEMA [None]
  - LYMPHOCYTE STIMULATION TEST POSITIVE [None]
